FAERS Safety Report 8001949-3 (Version None)
Quarter: 2011Q4

REPORT INFORMATION
  Report Type: 
  Country: None (occurrence: None)
  Receive Date: 20111222
  Receipt Date: 20111215
  Transmission Date: 20120403
  Serious: Yes (Other)
  Sender: FDA-Public Use
  Company Number: US-ROCHE-803010

PATIENT
  Sex: Female
  Weight: 56.75 kg

DRUGS (12)
  1. AMNESTEEM [Suspect]
     Indication: ACNE CYSTIC
     Dates: start: 20041228
  2. PRAVASTATIN [Concomitant]
     Indication: BLOOD CHOLESTEROL INCREASED
  3. SPRINTEC [Concomitant]
     Indication: CONTRACEPTION
  4. ACCUTANE [Suspect]
     Indication: ACNE CYSTIC
     Dosage: FOR 1 MONTH
     Route: 048
  5. ACCUTANE [Suspect]
     Dates: start: 20080701, end: 20081001
  6. AMNESTEEM [Suspect]
     Dosage: FREQUENCY INCREASED
     Dates: start: 20050125
  7. ACCUTANE [Suspect]
  8. ACCUTANE [Suspect]
     Dates: start: 20021211, end: 20030801
  9. ACCUTANE [Suspect]
     Dates: start: 20041001, end: 20050801
  10. ACCUTANE [Suspect]
  11. BACTRIM [Concomitant]
  12. ACCUTANE [Suspect]

REACTIONS (10)
  - IRRITABLE BOWEL SYNDROME [None]
  - DEPRESSION [None]
  - INFLAMMATORY BOWEL DISEASE [None]
  - DRY SKIN [None]
  - RASH [None]
  - COLITIS ULCERATIVE [None]
  - CHAPPED LIPS [None]
  - ACNE [None]
  - GASTROINTESTINAL HAEMORRHAGE [None]
  - HAEMORRHOIDS [None]
